FAERS Safety Report 22359299 (Version 1)
Quarter: 2023Q2

REPORT INFORMATION
  Report Type: Spontaneous
  Country: US (occurrence: US)
  Receive Date: 20230524
  Receipt Date: 20230524
  Transmission Date: 20230722
  Serious: No
  Sender: FDA-Public Use
  Company Number: US-TEVA-2023-US-2886838

PATIENT
  Age: 22 Year

DRUGS (1)
  1. AUSTEDO [Suspect]
     Active Substance: DEUTETRABENAZINE
     Indication: Tardive dyskinesia
     Dosage: 18 MILLIGRAM DAILY;

REACTIONS (4)
  - Somnolence [Unknown]
  - Parkinsonism [Unknown]
  - Metabolic disorder [Unknown]
  - Therapy non-responder [Unknown]
